FAERS Safety Report 9044484 (Version 1)
Quarter: 2013Q1

REPORT INFORMATION
  Report Type: Spontaneous
  Country: US (occurrence: US)
  Receive Date: 20130130
  Receipt Date: 20130130
  Transmission Date: 20140127
  Serious: No
  Sender: FDA-Public Use
  Company Number: US-ABBOTT-12P-163-0959743-00

PATIENT
  Age: 26 Year
  Sex: Female

DRUGS (3)
  1. HUMIRA 40 MG/0.8 ML PEN [Suspect]
     Indication: CROHN^S DISEASE
     Dosage: 3RD WAS YESTERDAY
     Dates: start: 20120625, end: 20120625
  2. HUMIRA 40 MG/0.8 ML PEN [Suspect]
     Dates: start: 20120709, end: 20120709
  3. HUMIRA 40 MG/0.8 ML PEN [Suspect]
     Dates: start: 20120723

REACTIONS (1)
  - Injection site discomfort [Not Recovered/Not Resolved]
